FAERS Safety Report 12285470 (Version 1)
Quarter: 2016Q2

REPORT INFORMATION
  Report Type: Spontaneous
  Country: US (occurrence: None)
  Receive Date: 20160419
  Receipt Date: 20160419
  Transmission Date: 20160815
  Serious: No
  Sender: FDA-Public Use
  Company Number: None

PATIENT
  Sex: Male

DRUGS (1)
  1. TOUJEO [Suspect]
     Active Substance: INSULIN GLARGINE

REACTIONS (6)
  - Feeling abnormal [None]
  - Headache [None]
  - Thirst [None]
  - Feeling hot [None]
  - Blood glucose increased [None]
  - Dizziness [None]
